FAERS Safety Report 12834820 (Version 2)
Quarter: 2017Q1

REPORT INFORMATION
  Report Type: Spontaneous
  Country: US (occurrence: US)
  Receive Date: 20161010
  Receipt Date: 20170124
  Transmission Date: 20170428
  Serious: No
  Sender: FDA-Public Use
  Company Number: US-PFIZER INC-2016468880

PATIENT
  Age: 62 Year
  Sex: Female
  Weight: 68 kg

DRUGS (9)
  1. ESTRING [Suspect]
     Active Substance: ESTRADIOL
     Dosage: 2 MG, EVERY 3 MONTHS
     Dates: start: 2011
  2. ESTRING [Suspect]
     Active Substance: ESTRADIOL
     Dosage: 2 MG, UNK [EVERY 90 DAYS]
     Dates: start: 20160706
  3. ESTRING [Suspect]
     Active Substance: ESTRADIOL
     Dosage: 2 MG, UNK [EVERY 90 DAYS]
     Dates: start: 20161004
  4. ESTRACE [Concomitant]
     Active Substance: ESTRADIOL
     Indication: UTERINE PROLAPSE
     Dosage: UNK UNK, AS NEEDED [PERIODICALLY AS NEEDED TO SUPPLEMENT ESTRING NOT WORKING TO PREVENT PROLAPSE]
  5. ESTRING [Suspect]
     Active Substance: ESTRADIOL
     Dosage: 2 MG, EVERY 3 MONTHS
     Dates: start: 2012
  6. ESTRING [Suspect]
     Active Substance: ESTRADIOL
     Dosage: 2 MG, UNK [EVERY 90 DAYS]
     Dates: start: 20160407
  7. TAMOXIFEN [Concomitant]
     Active Substance: TAMOXIFEN
     Dosage: 20 MG, DAILY
  8. ESTRING [Suspect]
     Active Substance: ESTRADIOL
     Dosage: 2 MG, UNK [EVERY 90 DAYS]
     Dates: start: 20170103
  9. ESTRING [Suspect]
     Active Substance: ESTRADIOL
     Dosage: 2 MG, UNK [EVERY 90 DAYS]
     Dates: start: 20151030

REACTIONS (2)
  - Drug effect incomplete [Recovered/Resolved]
  - Product use issue [Recovered/Resolved]

NARRATIVE: CASE EVENT DATE: 2011
